FAERS Safety Report 12968500 (Version 1)
Quarter: 2016Q4

REPORT INFORMATION
  Report Type: Spontaneous
  Country: GB (occurrence: GB)
  Receive Date: 20161123
  Receipt Date: 20161123
  Transmission Date: 20170207
  Serious: Yes (Other)
  Sender: FDA-Public Use
  Company Number: GB-TEVA-713762ACC

PATIENT
  Age: 59 Year
  Sex: Male
  Weight: 82.55 kg

DRUGS (3)
  1. TRIMETHOPRIM. [Suspect]
     Active Substance: TRIMETHOPRIM
     Indication: URINARY TRACT INFECTION
     Route: 048
     Dates: start: 20161019, end: 20161024
  2. RAMIPRIL. [Concomitant]
     Active Substance: RAMIPRIL
  3. CONTIFLO [Concomitant]
     Active Substance: TAMSULOSIN

REACTIONS (5)
  - Abdominal pain upper [Recovered/Resolved]
  - Constipation [Recovered/Resolved]
  - Nausea [Recovered/Resolved]
  - Anxiety [Recovered/Resolved]
  - Depression [Recovered/Resolved]

NARRATIVE: CASE EVENT DATE: 20161019
